FAERS Safety Report 11016349 (Version 3)
Quarter: 2016Q2

REPORT INFORMATION
  Report Type: Spontaneous
  Country: US (occurrence: US)
  Receive Date: 20150412
  Receipt Date: 20160620
  Transmission Date: 20160815
  Serious: Yes (Other)
  Sender: FDA-Public Use
  Company Number: US-JNJFOC-20130600661

PATIENT
  Age: 57 Year
  Sex: Male
  Weight: 111.13 kg

DRUGS (3)
  1. METHOTREXATE [Concomitant]
     Active Substance: METHOTREXATE
     Indication: RHEUMATOID ARTHRITIS
     Dosage: DOSE: 0.4 CC
     Route: 058
     Dates: start: 1999
  2. SIMPONI [Suspect]
     Active Substance: GOLIMUMAB
     Indication: RHEUMATOID ARTHRITIS
     Route: 058
  3. MELOXICAM. [Concomitant]
     Active Substance: MELOXICAM
     Indication: RHEUMATOID ARTHRITIS
     Route: 048

REACTIONS (1)
  - Rheumatoid arthritis [Not Recovered/Not Resolved]

NARRATIVE: CASE EVENT DATE: 20130602
